APPROVED DRUG PRODUCT: FLUOXETINE HYDROCHLORIDE
Active Ingredient: FLUOXETINE HYDROCHLORIDE
Strength: EQ 20MG BASE/5ML 
Dosage Form/Route: SOLUTION;ORAL
Application: A216953 | Product #001 | TE Code: AA
Applicant: UPSHER SMITH LABORATORIES LLC
Approved: Nov 15, 2022 | RLD: No | RS: No | Type: RX